FAERS Safety Report 5094347-6 (Version None)
Quarter: 2006Q3

REPORT INFORMATION
  Report Type: 
  Country: None (occurrence: None)
  Receive Date: 20060830
  Receipt Date: 20060815
  Transmission Date: 20061208
  Serious: Yes (Other)
  Sender: FDA-Public Use
  Company Number: DK200604004146

PATIENT
  Age: 55 Year
  Sex: Female
  Weight: 41 kg

DRUGS (3)
  1. FORTEO [Suspect]
     Indication: OSTEOPOROSIS
     Dosage: 20 MICROGRAMS, DAILY (1/D), SUBCUTANEOUS
     Route: 058
     Dates: start: 20050901, end: 20060224
  2. FORTEO [Concomitant]
  3. MORFIN (MORPHINE) [Concomitant]

REACTIONS (2)
  - HYPERCALCAEMIA [None]
  - MULTIPLE MYELOMA [None]
